FAERS Safety Report 7342745-X (Version None)
Quarter: 2011Q1

REPORT INFORMATION
  Report Type: 
  Country: None (occurrence: None)
  Receive Date: 20110310
  Receipt Date: 20110301
  Transmission Date: 20110831
  Serious: Yes (Hospitalization, Other)
  Sender: FDA-Public Use
  Company Number: US-SANOFI-AVENTIS-2011SA003218

PATIENT
  Age: 63 Year
  Sex: Male
  Weight: 111.36 kg

DRUGS (16)
  1. DILTIAZEM [Concomitant]
  2. LOPRESSOR [Concomitant]
  3. LOVENOX [Suspect]
     Indication: ANTICOAGULANT THERAPY
     Route: 065
     Dates: start: 20101226, end: 20110103
  4. LANTUS [Concomitant]
  5. VALSARTAN [Concomitant]
  6. LOVENOX [Suspect]
     Route: 065
     Dates: start: 20110112, end: 20110113
  7. SIMVASTATIN [Concomitant]
  8. VITAMIN D [Concomitant]
     Dosage: DOSE:1000 UNIT(S)
  9. LOVENOX [Suspect]
     Route: 065
     Dates: start: 20110104, end: 20110105
  10. BACLOFEN [Concomitant]
     Route: 048
  11. FUROSEMIDE [Concomitant]
  12. OMEPRAZOLE [Concomitant]
  13. LOVENOX [Suspect]
     Route: 065
     Dates: start: 20110106, end: 20110111
  14. COUMADIN [Suspect]
     Route: 065
  15. INSULIN PEN NOS [Concomitant]
     Dosage: DOSE:18 UNIT(S)
  16. ALL OTHER THERAPEUTIC PRODUCTS [Concomitant]

REACTIONS (8)
  - CONVULSION [None]
  - INTERNATIONAL NORMALISED RATIO DECREASED [None]
  - BLOOD BLISTER [None]
  - PROCEDURAL VOMITING [None]
  - TRANSIENT ISCHAEMIC ATTACK [None]
  - PERITONEAL HAEMORRHAGE [None]
  - MUSCLE HAEMORRHAGE [None]
  - CONTUSION [None]
